FAERS Safety Report 6313526-0 (Version None)
Quarter: 2009Q3

REPORT INFORMATION
  Report Type: 
  Country: None (occurrence: None)
  Receive Date: 20090814
  Receipt Date: 20090814
  Transmission Date: 20100115
  Serious: No
  Sender: FDA-Public Use
  Company Number: None

PATIENT
  Age: 59 Year
  Sex: Female
  Weight: 63.5036 kg

DRUGS (1)
  1. SYNTHROID [Suspect]
     Indication: HYPOTHYROIDISM
     Dosage: 1 TABKET 1 X DAILY PO
     Route: 048
     Dates: start: 20090724, end: 20090808

REACTIONS (13)
  - CARPAL TUNNEL SYNDROME [None]
  - DIZZINESS [None]
  - EMOTIONAL DISTRESS [None]
  - FEELING ABNORMAL [None]
  - HYPERTHYROIDISM [None]
  - HYPOAESTHESIA [None]
  - HYPOTHYROIDISM [None]
  - INSOMNIA [None]
  - MYALGIA [None]
  - PRODUCT MEASURED POTENCY ISSUE [None]
  - PRODUCT SUBSTITUTION ISSUE [None]
  - SWELLING FACE [None]
  - TARSAL TUNNEL SYNDROME [None]
